FAERS Safety Report 20465533 (Version 2)
Quarter: 2022Q1

REPORT INFORMATION
  Report Type: Spontaneous
  Country: US (occurrence: US)
  Receive Date: 20220212
  Receipt Date: 20220321
  Transmission Date: 20220424
  Serious: Yes (Other)
  Sender: FDA-Public Use
  Company Number: US-CELLTRION INC.-2022US001439

PATIENT

DRUGS (4)
  1. TRUXIMA [Suspect]
     Active Substance: RITUXIMAB-ABBS
     Indication: Immune thrombocytopenia
     Dosage: 820 MG WEEKLY FOR 4 CYCLES
     Dates: start: 20220107
  2. TRUXIMA [Suspect]
     Active Substance: RITUXIMAB-ABBS
     Dosage: 820 MG WEEKLY FOR 4 CYCLES
     Dates: start: 20220114
  3. TRUXIMA [Suspect]
     Active Substance: RITUXIMAB-ABBS
     Dosage: 820 MG WEEKLY FOR 4 CYCLES
     Dates: start: 20220121
  4. TRUXIMA [Suspect]
     Active Substance: RITUXIMAB-ABBS
     Dosage: 820 MG WEEKLY FOR 4 CYCLES
     Dates: start: 20220128

REACTIONS (2)
  - Immune thrombocytopenia [Unknown]
  - Off label use [Unknown]
